FAERS Safety Report 20493462 (Version 1)
Quarter: 2022Q1

REPORT INFORMATION
  Report Type: Spontaneous
  Country: US (occurrence: US)
  Receive Date: 20220220
  Receipt Date: 20220220
  Transmission Date: 20220423
  Serious: Yes (Other)
  Sender: FDA-Public Use
  Company Number: US-CELLTRION INC.-2021US018943

PATIENT

DRUGS (2)
  1. INFLECTRA [Suspect]
     Active Substance: INFLIXIMAB-DYYB
     Indication: Product used for unknown indication
     Dosage: UNKNOWN
     Route: 065
  2. INFLECTRA [Suspect]
     Active Substance: INFLIXIMAB-DYYB
     Dosage: 7.5 MILLIGRAM/KILOGRAM, EVERY 6 WEEKS

REACTIONS (5)
  - Colitis ulcerative [Unknown]
  - Drug level decreased [Unknown]
  - Product temperature excursion issue [Unknown]
  - Drug specific antibody absent [Unknown]
  - Off label use [Unknown]
